FAERS Safety Report 7675550-5 (Version None)
Quarter: 2011Q3

REPORT INFORMATION
  Report Type: 
  Country: None (occurrence: None)
  Receive Date: 20110810
  Receipt Date: 20110803
  Transmission Date: 20111222
  Serious: Yes (Other)
  Sender: FDA-Public Use
  Company Number: PHHY2011JP70518

PATIENT
  Sex: Female

DRUGS (3)
  1. ZOMETA [Suspect]
     Indication: METASTASES TO BONE
     Route: 041
  2. TRASTUZUMAB [Concomitant]
  3. VINORELBINE TARTRATE [Concomitant]

REACTIONS (5)
  - PALMAR-PLANTAR ERYTHRODYSAESTHESIA SYNDROME [None]
  - CANCER PAIN [None]
  - PARONYCHIA [None]
  - NEOPLASM PROGRESSION [None]
  - NEOPLASM MALIGNANT [None]
